FAERS Safety Report 4352994-0 (Version None)
Quarter: 2004Q2

REPORT INFORMATION
  Report Type: 
  Country: None (occurrence: None)
  Receive Date: 20040430
  Receipt Date: 20040130
  Transmission Date: 20050107
  Serious: No
  Sender: FDA-Public Use
  Company Number: 204612

PATIENT
  Age: 48 Year
  Sex: Female
  Weight: 107.9 kg

DRUGS (1)
  1. XOLAIR [Suspect]
     Dosage: 150MG, Q2W, SUBCUTANEOUS
     Route: 058
     Dates: start: 20031118, end: 20040129

REACTIONS (2)
  - DIZZINESS [None]
  - FLUSHING [None]
